FAERS Safety Report 4877658-6 (Version None)
Quarter: 2006Q1

REPORT INFORMATION
  Report Type: 
  Country: None (occurrence: None)
  Receive Date: 20060111
  Receipt Date: 20060102
  Transmission Date: 20060701
  Serious: Yes (Disabling, Other)
  Sender: FDA-Public Use
  Company Number: PHRM2006FR00441

PATIENT
  Age: 48 Year
  Sex: Female
  Weight: 53 kg

DRUGS (14)
  1. ZOMETA [Suspect]
     Indication: METASTASES TO BONE
     Route: 042
     Dates: start: 20041025, end: 20050215
  2. ZOMETA [Suspect]
     Route: 042
     Dates: start: 20050503, end: 20050601
  3. ZOMETA [Suspect]
     Route: 042
     Dates: start: 20050701, end: 20051004
  4. TAXOTERE [Suspect]
     Indication: BREAST CANCER METASTATIC
     Dates: start: 20041025, end: 20050215
  5. HERCEPTIN [Suspect]
     Indication: BREAST CANCER METASTATIC
     Dosage: UNK, UNK
     Dates: start: 20041025, end: 20050215
  6. HERCEPTIN [Suspect]
     Dates: start: 20050301, end: 20050601
  7. HERCEPTIN [Suspect]
     Dates: start: 20050701, end: 20051004
  8. NAVELBINE [Suspect]
     Indication: BREAST CANCER METASTATIC
     Dates: start: 20050301, end: 20050601
  9. GEMZAR [Suspect]
     Indication: BREAST CANCER METASTATIC
     Dates: start: 20050301, end: 20050601
  10. CARBOPLATIN [Concomitant]
     Indication: BREAST CANCER METASTATIC
     Dates: start: 20050701, end: 20051004
  11. KYTRIL [Concomitant]
     Indication: BREAST CANCER METASTATIC
     Dates: start: 20050913, end: 20050913
  12. SOLU-MEDROL [Concomitant]
     Indication: BREAST CANCER METASTATIC
     Dates: start: 20050913, end: 20050913
  13. LEVOTHYROXINE SODIUM [Concomitant]
     Indication: HYPOTHYROIDISM
  14. ESOMEPRAZOLE [Concomitant]

REACTIONS (10)
  - BONE DISORDER [None]
  - CELLULITIS [None]
  - FACE AND MOUTH X-RAY ABNORMAL [None]
  - IMPAIRED HEALING [None]
  - OSTEITIS [None]
  - OSTEONECROSIS [None]
  - PURULENT DISCHARGE [None]
  - TOOTH EXTRACTION [None]
  - TOOTHACHE [None]
  - WOUND DEBRIDEMENT [None]
